FAERS Safety Report 7630300-3 (Version None)
Quarter: 2011Q3

REPORT INFORMATION
  Report Type: 
  Country: None (occurrence: None)
  Receive Date: 20110722
  Receipt Date: 20110715
  Transmission Date: 20111222
  Serious: Yes (Other)
  Sender: FDA-Public Use
  Company Number: PHHY2011US64988

PATIENT
  Age: 28 Year
  Sex: Female

DRUGS (1)
  1. MINOCYCLINE HCL [Suspect]
     Indication: ACNE
     Dosage: 100 MG, DAILY

REACTIONS (6)
  - MONONEUROPATHY [None]
  - VASCULITIS NECROTISING [None]
  - PAIN [None]
  - GAIT DISTURBANCE [None]
  - HYPOAESTHESIA [None]
  - ASTHENIA [None]
